FAERS Safety Report 4857184-0 (Version None)
Quarter: 2005Q4

REPORT INFORMATION
  Report Type: 
  Country: None (occurrence: None)
  Receive Date: 20051219
  Receipt Date: 20050714
  Transmission Date: 20060501
  Serious: No
  Sender: FDA-Public Use
  Company Number: US-GLAXOSMITHKLINE-A0566253A

PATIENT
  Age: 39 Year
  Sex: Male

DRUGS (2)
  1. NICODERM CQ [Suspect]
  2. NICORETTE (MINT) [Suspect]
     Dates: start: 20050711, end: 20050711

REACTIONS (7)
  - APPLICATION SITE DERMATITIS [None]
  - DYSPEPSIA [None]
  - HICCUPS [None]
  - HYPERSENSITIVITY [None]
  - SWELLING FACE [None]
  - SWOLLEN TONGUE [None]
  - URTICARIA [None]
